FAERS Safety Report 7708544-1 (Version None)
Quarter: 2011Q3

REPORT INFORMATION
  Report Type: 
  Country: None (occurrence: None)
  Receive Date: 20110825
  Receipt Date: 20110818
  Transmission Date: 20111222
  Serious: Yes (Hospitalization)
  Sender: FDA-Public Use
  Company Number: FR-ASTELLAS-2011EU005571

PATIENT
  Age: 74 Year
  Sex: Female

DRUGS (1)
  1. PROGRAF [Suspect]
     Dosage: 1 MG, UNKNOWN/D
     Route: 065
     Dates: start: 20100101

REACTIONS (3)
  - DIABETES MELLITUS [None]
  - POLYDIPSIA [None]
  - POLYURIA [None]
